FAERS Safety Report 6186606-0 (Version None)
Quarter: 2009Q2

REPORT INFORMATION
  Report Type: 
  Country: None (occurrence: None)
  Receive Date: 20090507
  Receipt Date: 20090507
  Transmission Date: 20091009
  Serious: Yes (Life-Threatening, Hospitalization, Disabling, Other)
  Sender: FDA-Public Use
  Company Number: None

PATIENT
  Age: 32 Year
  Sex: Female
  Weight: 82.5547 kg

DRUGS (1)
  1. MIRENA [Suspect]
     Indication: CONTRACEPTION
     Dosage: INTRA-UTERINE
     Route: 015
     Dates: start: 20080629, end: 20090504

REACTIONS (8)
  - AMNESIA [None]
  - ANXIETY [None]
  - DYSPEPSIA [None]
  - FEELING ABNORMAL [None]
  - HOT FLUSH [None]
  - NIGHT SWEATS [None]
  - PALPITATIONS [None]
  - PANIC ATTACK [None]
